FAERS Safety Report 25604476 (Version 1)
Quarter: 2025Q3

REPORT INFORMATION
  Report Type: Report from Study
  Country: KR (occurrence: KR)
  Receive Date: 20250725
  Receipt Date: 20250725
  Transmission Date: 20251021
  Serious: Yes (Other)
  Sender: TAKEDA
  Company Number: KR-TAKEDA-2025TUS065892

PATIENT
  Age: 51 Year
  Sex: Female
  Weight: 48.6 kg

DRUGS (23)
  1. MARIBAVIR [Suspect]
     Active Substance: MARIBAVIR
     Indication: Cytomegalovirus infection
     Dosage: 400 MILLIGRAM, BID
     Dates: start: 20250410, end: 20250505
  2. VESICARE [Concomitant]
     Active Substance: SOLIFENACIN SUCCINATE
     Indication: Pollakiuria
     Dosage: 5 MILLIGRAM, QD
     Dates: start: 20250410, end: 20250509
  3. Solondo [Concomitant]
     Indication: Graft versus host disease in gastrointestinal tract
     Dosage: 5 MILLIGRAM, BID
     Dates: start: 20250408, end: 20250501
  4. Solondo [Concomitant]
     Dosage: 10 MILLIGRAM, BID
     Dates: start: 20250502
  5. MOSAPRIDE CITRATE [Concomitant]
     Active Substance: MOSAPRIDE CITRATE
     Indication: Graft versus host disease in gastrointestinal tract
     Dosage: 5 MILLIGRAM, TID
     Dates: start: 20250327, end: 20250412
  6. ACETAMINOPHEN\TRAMADOL [Concomitant]
     Active Substance: ACETAMINOPHEN\TRAMADOL
     Indication: Compression fracture
     Dosage: UNK UNK, BID
     Dates: start: 20250410, end: 20250411
  7. HUMULIN R [Concomitant]
     Active Substance: INSULIN HUMAN
     Indication: Hyperglycaemia
  8. K contin continus [Concomitant]
     Indication: Prophylaxis
     Dosage: 600 MILLIGRAM, TID
     Dates: start: 20250325
  9. PANTOPRAZOLE SODIUM [Concomitant]
     Active Substance: PANTOPRAZOLE SODIUM
     Indication: Graft versus host disease in gastrointestinal tract
     Dosage: 40 MILLIGRAM, BID
     Dates: start: 20241221, end: 20250424
  10. ACETYLCYSTEINE [Concomitant]
     Active Substance: ACETYLCYSTEINE
     Indication: Prophylaxis
     Dosage: 600 MILLIGRAM, TID
     Dates: start: 20250106, end: 20250411
  11. Hepa merz lact [Concomitant]
     Indication: Prophylaxis
     Dosage: 20 GRAM, QD
     Dates: start: 20241226, end: 20250424
  12. SULFAMETHOXAZOLE\TRIMETHOPRIM [Concomitant]
     Active Substance: SULFAMETHOXAZOLE\TRIMETHOPRIM
     Indication: Infection prophylaxis
     Dosage: 400 MILLIGRAM, QD
     Dates: start: 20240716
  13. NOXAFIL [Concomitant]
     Active Substance: POSACONAZOLE
     Indication: Prophylaxis
     Dosage: 300 MILLIGRAM, QD
     Dates: start: 20250121, end: 20250509
  14. OLMESARTAN MEDOXOMIL [Concomitant]
     Active Substance: OLMESARTAN MEDOXOMIL
     Indication: Hypertension
     Dosage: 20 MILLIGRAM, QD
     Dates: start: 20250307, end: 20250418
  15. AMLODIPINE OROTATE [Concomitant]
     Active Substance: AMLODIPINE OROTATE
     Indication: Hypertension
     Dosage: 5 MILLIGRAM, QD
     Dates: start: 20250312, end: 20250418
  16. Dicamax [Concomitant]
     Indication: Osteopenia
     Dosage: UNK, QD
     Dates: start: 20250411, end: 20250510
  17. LOPERAMIDE [Concomitant]
     Active Substance: LOPERAMIDE
     Indication: Prophylaxis against diarrhoea
     Dosage: 4 MILLIGRAM, BID
     Dates: start: 20250414, end: 20250414
  18. LOPERAMIDE [Concomitant]
     Active Substance: LOPERAMIDE
     Dosage: 2 MILLIGRAM, BID
     Dates: start: 20250415, end: 20250427
  19. LOPERAMIDE [Concomitant]
     Active Substance: LOPERAMIDE
     Dosage: 2 MILLIGRAM, BID
     Dates: start: 20250502, end: 20250510
  20. NALOXONE HYDROCHLORIDE\OXYCODONE HYDROCHLORIDE [Concomitant]
     Active Substance: NALOXONE HYDROCHLORIDE\OXYCODONE HYDROCHLORIDE
     Indication: Prophylaxis
     Dosage: 10 MILLIGRAM, BID
     Dates: start: 20250411, end: 20250510
  21. PROLIA [Concomitant]
     Active Substance: DENOSUMAB
     Indication: Osteopenia
     Dosage: 60 MILLIGRAM, QD
     Dates: start: 20250411, end: 20250411
  22. Fotagel [Concomitant]
     Indication: Prophylaxis against diarrhoea
     Dosage: 20 MILLILITER, TID
     Dates: start: 20250501, end: 20250509
  23. ROMIPLOSTIM [Concomitant]
     Active Substance: ROMIPLOSTIM
     Dosage: 250 MICROGRAM, 1/WEEK
     Dates: start: 20250212

REACTIONS (1)
  - Bacteraemia [Recovered/Resolved]

NARRATIVE: CASE EVENT DATE: 20250418
